APPROVED DRUG PRODUCT: GILDESS FE 1/20
Active Ingredient: ETHINYL ESTRADIOL; NORETHINDRONE ACETATE
Strength: 0.02MG;1MG
Dosage Form/Route: TABLET;ORAL-28
Application: A077077 | Product #001
Applicant: PH HEALTH LTD
Approved: May 20, 2005 | RLD: No | RS: No | Type: DISCN